FAERS Safety Report 22064304 (Version 2)
Quarter: 2024Q3

REPORT INFORMATION
  Report Type: Spontaneous
  Country: CA (occurrence: CA)
  Receive Date: 20230306
  Receipt Date: 20240716
  Transmission Date: 20241017
  Serious: Yes (Death, Other)
  Sender: PFIZER
  Company Number: CA-PFIZER INC-202201332303

PATIENT
  Age: 92 Year
  Sex: Male

DRUGS (2)
  1. VYNDAQEL [Suspect]
     Active Substance: TAFAMIDIS MEGLUMINE
     Indication: Cardiac amyloidosis
     Dosage: 80 MG, 1X/DAY
     Route: 048
     Dates: start: 20221022
  2. VYNDAQEL [Suspect]
     Active Substance: TAFAMIDIS MEGLUMINE
     Indication: Cardiac amyloidosis

REACTIONS (16)
  - Death [Fatal]
  - Cardiac failure congestive [Unknown]
  - Pulmonary oedema [Unknown]
  - Haemorrhoidal haemorrhage [Recovered/Resolved]
  - Viral infection [Unknown]
  - Oropharyngeal pain [Unknown]
  - Respiratory tract congestion [Unknown]
  - Tremor [Unknown]
  - Secretion discharge [Unknown]
  - Dyspnoea [Unknown]
  - Cough [Unknown]
  - Upper respiratory tract infection [Unknown]
  - Nasal congestion [Unknown]
  - Anaemia [Unknown]
  - Blood creatinine increased [Unknown]
  - Rales [Unknown]

NARRATIVE: CASE EVENT DATE: 20220101
